FAERS Safety Report 19857148 (Version 3)
Quarter: 2022Q1

REPORT INFORMATION
  Report Type: Report from Study
  Country: US (occurrence: US)
  Receive Date: 20210921
  Receipt Date: 20220112
  Transmission Date: 20220423
  Serious: Yes (Death, Hospitalization, Other)
  Sender: FDA-Public Use
  Company Number: US-ACADIA PHARMACEUTICALS INC.-ACA-2021-PIM-003145

PATIENT
  Age: 84 Year
  Sex: Female

DRUGS (18)
  1. NUPLAZID [Suspect]
     Active Substance: PIMAVANSERIN TARTRATE
     Indication: Parkinson^s disease
     Dosage: 34 MILLIGRAM, QD
     Route: 048
     Dates: start: 20210311
  2. SYNTHROID [Concomitant]
     Active Substance: LEVOTHYROXINE SODIUM
     Dosage: 88 MILLIGRAM
  3. KLONOPIN [Concomitant]
     Active Substance: CLONAZEPAM
     Dosage: 5 MILLIGRAM
  4. TRAZODONE [Concomitant]
     Active Substance: TRAZODONE HYDROCHLORIDE
     Dosage: 50 MILLIGRAM
  5. SINEMET [Concomitant]
     Active Substance: CARBIDOPA\LEVODOPA
     Dosage: 25-100MG
  6. ZOLOFT [Concomitant]
     Active Substance: SERTRALINE HYDROCHLORIDE
     Dosage: 100 MILLIGRAM
  7. MIRTAZAPINE [Concomitant]
     Active Substance: MIRTAZAPINE
     Dosage: 30 MILLIGRAM
  8. PRILOSEC [Concomitant]
     Active Substance: OMEPRAZOLE MAGNESIUM
     Dosage: 20 MILLIGRAM
  9. BENTYL [Concomitant]
     Active Substance: DICYCLOMINE HYDROCHLORIDE
     Dosage: 20 MILLIGRAM
  10. LEVSIN SL [Concomitant]
     Active Substance: HYOSCYAMINE SULFATE
  11. ZOFRAN [Concomitant]
     Active Substance: ONDANSETRON HYDROCHLORIDE
     Dosage: 8 MILLIGRAM
  12. FLONASE [Concomitant]
     Active Substance: FLUTICASONE PROPIONATE
  13. LIPITOR [Concomitant]
     Active Substance: ATORVASTATIN CALCIUM
     Dosage: 10 MILLIGRAM
  14. DILTIAZEM [Concomitant]
     Active Substance: DILTIAZEM
     Dosage: 180
  15. CARAFATE [Concomitant]
     Active Substance: SUCRALFATE
     Dosage: 1 GRAM
  16. CARTIA XT [Concomitant]
     Active Substance: DILTIAZEM HYDROCHLORIDE
  17. REMERON [Concomitant]
     Active Substance: MIRTAZAPINE
  18. EXELON [Concomitant]
     Active Substance: RIVASTIGMINE TARTRATE

REACTIONS (5)
  - Dementia [Recovered/Resolved]
  - Refusal of treatment by patient [Recovered/Resolved]
  - Hypophagia [Recovered/Resolved]
  - Urinary tract infection [Recovered/Resolved]
  - Mental status changes [Recovered/Resolved]

NARRATIVE: CASE EVENT DATE: 20210806
